FAERS Safety Report 7559732-9 (Version None)
Quarter: 2011Q2

REPORT INFORMATION
  Report Type: 
  Country: None (occurrence: None)
  Receive Date: 20110606
  Receipt Date: 20110520
  Transmission Date: 20111010
  Serious: Yes (Death, Hospitalization, Other)
  Sender: FDA-Public Use
  Company Number: 2011PROUSA000348

PATIENT
  Age: 62 Year
  Sex: Male
  Weight: 136.1 kg

DRUGS (13)
  1. CALCIUM (CALCIUM) [Concomitant]
  2. ATENOLOL [Concomitant]
  3. NEURONTIN [Concomitant]
  4. ONDANSETRON [Concomitant]
  5. MULTIVITAMINS (ASCORBIC ACID, ERGOCALCIFEROL, FOLIC ACID, NICOTINAMIDE [Concomitant]
  6. CASODEX [Concomitant]
  7. PROVENGE [Suspect]
     Indication: PROSTATE CANCER METASTATIC
     Dosage: 250 ML, SINGLE, INTRAVENOUS
     Route: 042
     Dates: start: 20110407, end: 20110407
  8. LUPRON [Concomitant]
  9. INDOCIN /00003801/ (INDOMETHACIN) [Concomitant]
  10. TERAZOSIN HCL [Concomitant]
  11. ZOLPIDEM [Concomitant]
  12. ZOMETA [Concomitant]
  13. ASPIRIN [Concomitant]

REACTIONS (4)
  - SUBDURAL HAEMATOMA [None]
  - TRIGEMINAL NEURALGIA [None]
  - HAEMORRHAGE [None]
  - PROSTATE CANCER [None]
